FAERS Safety Report 6075736-X (Version None)
Quarter: 2009Q1

REPORT INFORMATION
  Report Type: 
  Country: None (occurrence: None)
  Receive Date: 20090212
  Receipt Date: 20090203
  Transmission Date: 20090719
  Serious: Yes (Hospitalization)
  Sender: FDA-Public Use
  Company Number: JP-ABBOTT-08P-087-0494493-00

PATIENT
  Sex: Female
  Weight: 63.5 kg

DRUGS (14)
  1. HUMIRA [Suspect]
     Indication: RHEUMATOID ARTHRITIS
     Route: 058
     Dates: start: 20081126, end: 20081222
  2. METHOTREXATE [Suspect]
     Indication: RHEUMATOID ARTHRITIS
     Dosage: 8 MG
     Route: 048
     Dates: start: 20030314
  3. METHOTREXATE [Suspect]
  4. PREDNISOLONE [Concomitant]
     Indication: RHEUMATOID ARTHRITIS
     Dosage: 5 MG
     Route: 048
     Dates: start: 20030314
  5. TRIAZOLAM [Concomitant]
     Indication: INSOMNIA
     Route: 048
  6. ETIZOLAM [Concomitant]
     Indication: INSOMNIA
     Dosage: 0.5 MG
     Route: 048
     Dates: start: 20080625
  7. ETODOLAC [Concomitant]
     Indication: RHEUMATOID ARTHRITIS
     Dosage: 400 MG
     Route: 048
  8. ALENDRONATE SODIUM [Concomitant]
     Indication: OSTEOPOROSIS
     Dosage: 35 MG
     Route: 048
     Dates: start: 20080919
  9. ALFACALCIDOL [Concomitant]
     Indication: OSTEOPOROSIS
     Dosage: 0.5 MCG
     Route: 048
     Dates: start: 20041101
  10. TICLOPIDINE HYDROCHLORIDE [Concomitant]
     Indication: ARTERIOSCLEROSIS OBLITERANS
     Dosage: 300 MG
     Route: 048
  11. ECABET SODIUM HYDRATE [Concomitant]
     Indication: GASTRITIS
     Dosage: 3 MG
     Route: 048
     Dates: start: 20030214
  12. SENNOSIDE [Concomitant]
     Indication: CONSTIPATION
     Dosage: 24 MG
     Route: 048
  13. ZOLPIDEM TARTRATE [Concomitant]
     Indication: INSOMNIA
     Dosage: ONCE A 2 DAYS
     Route: 048
     Dates: start: 20031212
  14. PARACETAMOL [Concomitant]
     Indication: MIGRAINE
     Dosage: 400 MG
     Route: 048
     Dates: start: 20080919

REACTIONS (6)
  - ABDOMINAL PAIN UPPER [None]
  - CHILLS [None]
  - HEADACHE [None]
  - HEPATIC FUNCTION ABNORMAL [None]
  - NAUSEA [None]
  - PARALYSIS [None]
